FAERS Safety Report 7155029-X (Version None)
Quarter: 2010Q4

REPORT INFORMATION
  Report Type: 
  Country: None (occurrence: None)
  Receive Date: 20101214
  Receipt Date: 20091216
  Transmission Date: 20110411
  Serious: No
  Sender: FDA-Public Use
  Company Number: US-AMGEN-KDL367711

PATIENT

DRUGS (2)
  1. ENBREL [Suspect]
     Indication: RHEUMATOID ARTHRITIS
     Dosage: 50 MG, QWK
     Route: 058
     Dates: start: 20090917
  2. HYDROXYCHLOROQUINE SULFATE [Concomitant]
     Dosage: 200 MG, QD
     Route: 048

REACTIONS (6)
  - H1N1 INFLUENZA [None]
  - IMMUNE SYSTEM DISORDER [None]
  - INJECTION SITE URTICARIA [None]
  - NAUSEA [None]
  - RASH ERYTHEMATOUS [None]
  - URTICARIA [None]
